FAERS Safety Report 5541439-0 (Version None)
Quarter: 2007Q4

REPORT INFORMATION
  Report Type: 
  Country: None (occurrence: None)
  Receive Date: 20071210
  Receipt Date: 20071127
  Transmission Date: 20080405
  Serious: Yes (Other)
  Sender: FDA-Public Use
  Company Number: US-BAYER-US-2007-043409

PATIENT
  Age: 31 Year
  Sex: Female
  Weight: 83 kg

DRUGS (1)
  1. MIRENA [Suspect]
     Indication: HORMONE THERAPY
     Route: 015
     Dates: start: 20070115, end: 20070410

REACTIONS (4)
  - OVARIAN CYST [None]
  - PAIN [None]
  - PELVIC PAIN [None]
  - VAGINAL HAEMORRHAGE [None]
